FAERS Safety Report 5552435-1 (Version None)
Quarter: 2007Q4

REPORT INFORMATION
  Report Type: 
  Country: None (occurrence: None)
  Receive Date: 20071130
  Receipt Date: 20071121
  Transmission Date: 20080405
  Serious: Yes (Other)
  Sender: FDA-Public Use
  Company Number: CHPA2007US12566

PATIENT
  Age: 60 Year
  Sex: Male

DRUGS (1)
  1. TRIAMINIC SRT [Suspect]

REACTIONS (1)
  - HAEMORRHAGIC STROKE [None]
